FAERS Safety Report 8073326-0 (Version None)
Quarter: 2012Q1

REPORT INFORMATION
  Report Type: 
  Country: None (occurrence: None)
  Receive Date: 20120126
  Receipt Date: 20120113
  Transmission Date: 20120608
  Serious: Yes (Hospitalization)
  Sender: FDA-Public Use
  Company Number: PL-UCBSA-032622

PATIENT
  Age: 56 Year
  Sex: Female
  Weight: 117.9 kg

DRUGS (1)
  1. CERTOLIZUMAB PEGOL [Suspect]
     Indication: PSORIATIC ARTHROPATHY
     Dosage: 200 MG
     Route: 058

REACTIONS (1)
  - HERPES ZOSTER [None]
